FAERS Safety Report 22117873 (Version 1)
Quarter: 2023Q1

REPORT INFORMATION
  Report Type: Spontaneous
  Country: US (occurrence: US)
  Receive Date: 20230321
  Receipt Date: 20230321
  Transmission Date: 20230417
  Serious: No
  Sender: FDA-Public Use
  Company Number: US-ASTELLAS PHARMA EUROPE B.V.-2023US008754

PATIENT
  Age: 68 Year
  Sex: Male

DRUGS (1)
  1. TAMSULOSIN HYDROCHLORIDE [Suspect]
     Active Substance: TAMSULOSIN HYDROCHLORIDE
     Indication: Prostatic disorder
     Dosage: UNK
     Route: 065

REACTIONS (2)
  - Blood pressure decreased [Recovering/Resolving]
  - Condition aggravated [Recovering/Resolving]
